FAERS Safety Report 8992710 (Version 3)
Quarter: 2014Q2

REPORT INFORMATION
  Report Type: Report from Study
  Country: JP (occurrence: JP)
  Receive Date: 20130101
  Receipt Date: 20140414
  Transmission Date: 20141212
  Serious: Yes (Hospitalization, Disabling, Other)
  Sender: FDA-Public Use
  Company Number: JP-ROCHE-1175980

PATIENT
  Age: 75 Year
  Sex: Female

DRUGS (11)
  1. RANIBIZUMAB [Suspect]
     Indication: AGE-RELATED MACULAR DEGENERATION
     Route: 050
     Dates: start: 20100209
  2. RANIBIZUMAB [Suspect]
     Route: 050
     Dates: start: 20100309
  3. RANIBIZUMAB [Suspect]
     Route: 050
     Dates: start: 20100408
  4. RANIBIZUMAB [Suspect]
     Route: 050
     Dates: start: 20100708
  5. RANIBIZUMAB [Suspect]
     Route: 050
     Dates: start: 20100909
  6. RANIBIZUMAB [Suspect]
     Route: 050
     Dates: start: 20110113
  7. RANIBIZUMAB [Suspect]
     Route: 050
     Dates: start: 20110310
  8. RANIBIZUMAB [Suspect]
     Route: 050
     Dates: start: 20110411
  9. RANIBIZUMAB [Suspect]
     Route: 050
     Dates: start: 20110509
  10. RANIBIZUMAB [Suspect]
     Route: 050
     Dates: start: 20120409, end: 20130130
  11. TOSUFLOXACIN [Concomitant]
     Route: 065
     Dates: start: 201002, end: 201105

REACTIONS (2)
  - Cerebral infarction [Unknown]
  - Cerebral haemorrhage [Unknown]
